FAERS Safety Report 6855806-6 (Version None)
Quarter: 2010Q3

REPORT INFORMATION
  Report Type: 
  Country: None (occurrence: None)
  Receive Date: 20100715
  Receipt Date: 20100715
  Transmission Date: 20110219
  Serious: Yes (Other)
  Sender: FDA-Public Use
  Company Number: None

PATIENT
  Age: 29 Year
  Sex: Female
  Weight: 43.0917 kg

DRUGS (3)
  1. VIMPAT [Suspect]
     Dosage: 100MG BID
  2. DILANTIN [Concomitant]
  3. GABITRIL [Concomitant]

REACTIONS (1)
  - THROMBOCYTOPENIA [None]
